FAERS Safety Report 6773364-1 (Version None)
Quarter: 2010Q2

REPORT INFORMATION
  Report Type: 
  Country: None (occurrence: None)
  Receive Date: 20100616
  Receipt Date: 20100422
  Transmission Date: 20101027
  Serious: No
  Sender: FDA-Public Use
  Company Number: US-ABBOTT-10P-163-0640570-00

PATIENT
  Sex: Female
  Weight: 108.96 kg

DRUGS (7)
  1. TRILIPIX [Suspect]
     Indication: BLOOD CHOLESTEROL INCREASED
     Route: 048
     Dates: start: 20090901, end: 20091201
  2. TRILIPIX [Suspect]
     Route: 048
     Dates: start: 20100201
  3. TRILIPIX [Suspect]
     Route: 048
     Dates: start: 20090901, end: 20091201
  4. SIMVASTATIN [Concomitant]
     Indication: BLOOD CHOLESTEROL INCREASED
  5. RAMIPRIL [Concomitant]
     Indication: HYPERTENSION
     Dates: end: 20100301
  6. RANITIDINE [Concomitant]
     Indication: GASTROOESOPHAGEAL REFLUX DISEASE
  7. COZAAR [Concomitant]
     Indication: HYPERTENSION
     Dates: start: 20100301

REACTIONS (4)
  - COUGH [None]
  - DRY THROAT [None]
  - PAIN IN EXTREMITY [None]
  - URTICARIA [None]
